FAERS Safety Report 8880554 (Version 1)
Quarter: 2012Q4

REPORT INFORMATION
  Report Type: 
  Country: DE (occurrence: DE)
  Receive Date: 20121031
  Receipt Date: 20121031
  Transmission Date: 20130627
  Serious: Yes (Hospitalization)
  Sender: FDA-Public Use
  Company Number: DE-ASTRAZENECA-2012SE81230

PATIENT
  Age: 28801 Day
  Sex: Female
  Weight: 75 kg

DRUGS (1)
  1. BRILIQUE [Suspect]
     Indication: MYOCARDIAL INFARCTION
     Route: 048
     Dates: start: 20120911, end: 20120913

REACTIONS (1)
  - Hepatitis toxic [Unknown]
